FAERS Safety Report 6396020-0 (Version None)
Quarter: 2009Q4

REPORT INFORMATION
  Report Type: 
  Country: None (occurrence: None)
  Receive Date: 20091009
  Receipt Date: 20090929
  Transmission Date: 20100525
  Serious: Yes (Hospitalization, Other)
  Sender: FDA-Public Use
  Company Number: ES-ELI_LILLY_AND_COMPANY-ES200910000343

PATIENT
  Age: 53 Year
  Sex: Male

DRUGS (3)
  1. ZYPREXA [Suspect]
     Indication: DEPRESSION
     Dosage: 15 MG, DAILY (1/D)
     Route: 048
     Dates: start: 20090701, end: 20090801
  2. DIAZEPAM [Concomitant]
     Dosage: 10 MG, DAILY (1/D)
     Route: 048
     Dates: start: 20090128, end: 20090801
  3. MIRTAZAPINE [Concomitant]
     Indication: DEPRESSION
     Dosage: 30 MG, UNK
     Route: 048
     Dates: start: 20090128, end: 20090801

REACTIONS (2)
  - OFF LABEL USE [None]
  - PULMONARY EMBOLISM [None]
